FAERS Safety Report 4428216-9 (Version None)
Quarter: 2004Q3

REPORT INFORMATION
  Report Type: 
  Country: None (occurrence: None)
  Receive Date: 20040726
  Receipt Date: 20040322
  Transmission Date: 20050211
  Serious: No
  Sender: FDA-Public Use
  Company Number: USA040362235

PATIENT
  Age: 69 Year
  Sex: Female
  Weight: 80 kg

DRUGS (3)
  1. FORTEO [Suspect]
     Indication: OSTEOPOROSIS
     Dosage: 20 UG/ 1 DAY
     Dates: start: 20040304, end: 20040312
  2. HYDROCHLOROTHIAZIDE [Concomitant]
     Indication: SPINAL DISORDER
  3. CALCIUM [Concomitant]

REACTIONS (4)
  - CHEST PAIN [None]
  - CHILLS [None]
  - SINUSITIS [None]
  - TREMOR [None]
